FAERS Safety Report 14921725 (Version 1)
Quarter: 2018Q2

REPORT INFORMATION
  Report Type: Other
  Country: GB (occurrence: GB)
  Receive Date: 20180522
  Receipt Date: 20180522
  Transmission Date: 20180711
  Serious: Yes (Other)
  Sender: FDA-Public Use
  Company Number: GB-ASTELLAS-2018US023492

PATIENT
  Age: 26 Year
  Sex: Female
  Weight: 2 kg

DRUGS (13)
  1. DAUNORUBICIN [Suspect]
     Active Substance: DAUNORUBICIN
     Indication: FOETAL EXPOSURE DURING PREGNANCY
     Dosage: 50 MG/M2, ONCE DAILY (ON DAYS 1,3 AND 5)
     Route: 065
  2. DAUNORUBICIN [Suspect]
     Active Substance: DAUNORUBICIN
     Indication: ACUTE MYELOID LEUKAEMIA
     Dosage: 60 MG/M2, ONCE DAILY (ON DAYS 1,3 AND 5)
     Route: 065
  3. DAUNORUBICIN [Suspect]
     Active Substance: DAUNORUBICIN
     Dosage: 60 MG/M2, ONCE DAILY (ON DAYS 1,3 AND 5)
     Route: 065
  4. CYTARABINE. [Suspect]
     Active Substance: CYTARABINE
     Indication: ACUTE MYELOID LEUKAEMIA
     Dosage: 100 MG/M2, EVERY 12 HOURS 2 CYCLES (DAYS 1-10)
     Route: 065
  5. DAUNORUBICIN [Suspect]
     Active Substance: DAUNORUBICIN
     Dosage: 50 MG/M2, ONCE DAILY (ON DAYS 1,3 AND 5)
     Route: 065
  6. CYTARABINE. [Suspect]
     Active Substance: CYTARABINE
     Indication: FOETAL EXPOSURE DURING PREGNANCY
     Dosage: 100 MG/M2, EVERY 12 HOURS 2 CYCLES (DAYS 1-8)
     Route: 065
  7. MEROPENEM. [Suspect]
     Active Substance: MEROPENEM
     Indication: ESCHERICHIA URINARY TRACT INFECTION
  8. DAUNORUBICIN [Suspect]
     Active Substance: DAUNORUBICIN
     Dosage: 50 MG/M2, ONCE DAILY (ON DAYS 1,3 AND 5)
     Route: 065
  9. MEROPENEM. [Suspect]
     Active Substance: MEROPENEM
     Indication: FOETAL EXPOSURE DURING PREGNANCY
     Route: 042
  10. AMPHOTERICIN B, LIPOSOME [Suspect]
     Active Substance: AMPHOTERICIN B
     Indication: ANTIFUNGAL PROPHYLAXIS
     Dosage: UNK UNK, UNKNOWN FREQ.
     Route: 065
  11. MEROPENEM. [Suspect]
     Active Substance: MEROPENEM
     Indication: PNEUMONIA MORAXELLA
     Route: 042
  12. DAUNORUBICIN [Suspect]
     Active Substance: DAUNORUBICIN
     Dosage: 60 MG/M2, ONCE DAILY (ON DAYS 1,3 AND 5)
     Route: 065
  13. FILGRASTIM [Suspect]
     Active Substance: FILGRASTIM
     Indication: FOETAL EXPOSURE DURING PREGNANCY
     Route: 058

REACTIONS (5)
  - Off label use [Unknown]
  - Escherichia urinary tract infection [Unknown]
  - Pneumonia moraxella [Unknown]
  - Premature delivery [Recovered/Resolved]
  - Maternal exposure during pregnancy [Recovered/Resolved]
